FAERS Safety Report 6687855-5 (Version None)
Quarter: 2010Q2

REPORT INFORMATION
  Report Type: 
  Country: None (occurrence: None)
  Receive Date: 20100409
  Receipt Date: 20091123
  Transmission Date: 20101027
  Serious: Yes (Hospitalization, Other)
  Sender: FDA-Public Use
  Company Number: AE  2009-140

PATIENT
  Age: 64 Year
  Sex: Female
  Weight: 74.8435 kg

DRUGS (16)
  1. FAZACLO ODT [Suspect]
     Indication: BIPOLAR DISORDER
     Dosage: 200 MG DAILY PO
     Route: 048
     Dates: start: 20090505, end: 20091015
  2. FAZACLO ODT [Suspect]
     Indication: SCHIZOAFFECTIVE DISORDER
     Dosage: 200 MG DAILY PO
     Route: 048
     Dates: start: 20090505, end: 20091015
  3. BENAZEPRIL HYDROCHLORIDE [Concomitant]
  4. SYNTHROID [Concomitant]
  5. LASIX [Concomitant]
  6. COREG [Concomitant]
  7. MULTI-VITAMIN [Concomitant]
  8. COLACE [Concomitant]
  9. LITHIUM CARBONATE [Concomitant]
  10. DEPAKOTE ER [Concomitant]
  11. PRISTIQ [Concomitant]
  12. NAMENDA [Concomitant]
  13. HALDOL [Concomitant]
  14. LOTENSIN [Concomitant]
  15. DETROL LA [Concomitant]
  16. CALCIUM CARBONATE [Concomitant]

REACTIONS (3)
  - AGRANULOCYTOSIS [None]
  - LEUKOPENIA [None]
  - SLEEP DISORDER [None]
